FAERS Safety Report 16314009 (Version 4)
Quarter: 2019Q4

REPORT INFORMATION
  Report Type: Spontaneous
  Country: US (occurrence: US)
  Receive Date: 20190515
  Receipt Date: 20191122
  Transmission Date: 20200122
  Serious: Yes (Other)
  Sender: FDA-Public Use
  Company Number: US-PFIZER INC-2019178746

PATIENT
  Age: 82 Year
  Sex: Female
  Weight: 54.42 kg

DRUGS (6)
  1. PREMARIN [Suspect]
     Active Substance: ESTROGENS, CONJUGATED
     Dosage: UNK, DAILY [EVERY DAY]
     Dates: start: 1970
  2. PREMARIN [Suspect]
     Active Substance: ESTROGENS, CONJUGATED
     Dosage: 0.3 MG, ALTERNATE DAY (EVERY OTHER DAY)
  3. SERTRALINE [Concomitant]
     Active Substance: SERTRALINE HYDROCHLORIDE
     Dosage: 2 MG, 1X/DAY
  4. ARMOUR THYROID [Concomitant]
     Active Substance: THYROID, PORCINE
     Dosage: 60 MG, UNK (MONDAY, WEDNESDAY AND THURSDAY)
     Route: 048
  5. PREMARIN [Suspect]
     Active Substance: ESTROGENS, CONJUGATED
     Dosage: 0.3 MG, 1X/DAY [QD ]
  6. ARMOUR THYROID [Concomitant]
     Active Substance: THYROID, PORCINE
     Dosage: 90 MG, UNK (TUESDAY, THURSDAY, SATURDAY AND SUNDAY)
     Route: 048

REACTIONS (10)
  - Arthritis [Unknown]
  - Nerve compression [Unknown]
  - Intentional product misuse [Unknown]
  - Condition aggravated [Recovering/Resolving]
  - Peripheral swelling [Recovering/Resolving]
  - Fluid retention [Recovering/Resolving]
  - Muscular weakness [Unknown]
  - Osteoarthritis [Recovering/Resolving]
  - Off label use [Unknown]
  - Product use issue [Unknown]
